FAERS Safety Report 24843262 (Version 1)
Quarter: 2025Q1

REPORT INFORMATION
  Report Type: Report from Study
  Country: US (occurrence: US)
  Receive Date: 20250115
  Receipt Date: 20250115
  Transmission Date: 20250409
  Serious: No
  Sender: HRA PHARMA
  Company Number: US-ORG100014127-2022000366

PATIENT
  Age: 59 Year
  Sex: Female

DRUGS (22)
  1. LYSODREN [Suspect]
     Active Substance: MITOTANE
     Indication: Adrenal gland cancer
     Dosage: 4 TABLETS TWICE DAILY
     Route: 048
     Dates: start: 20201020
  2. LYSODREN [Suspect]
     Active Substance: MITOTANE
     Indication: Adrenal gland cancer
     Dosage: 6 TABS ONCE PER DAY
     Dates: start: 20210303
  3. LYSODREN [Suspect]
     Active Substance: MITOTANE
     Indication: Adrenal gland cancer
     Dosage: 2 TABLETS TWICE DAILY
     Dates: start: 20230511
  4. LYSODREN [Suspect]
     Active Substance: MITOTANE
     Indication: Adrenal gland cancer
     Dosage: 04 TABLETS TWICE DAILY
  5. DIFICID TAB 200MG [Concomitant]
     Indication: Product used for unknown indication
  6. FLUDROCORT TAB 0.1MG [Concomitant]
     Indication: Product used for unknown indication
  7. LAMICTAL TAB 100MG [Concomitant]
     Indication: Product used for unknown indication
  8. LORAZEPAM TAB 0.5MG [Concomitant]
     Indication: Product used for unknown indication
  9. OMEPRAZOLE CAP40MG [Concomitant]
     Indication: Product used for unknown indication
  10. PREDNISONE [Concomitant]
     Active Substance: PREDNISONE
     Indication: Product used for unknown indication
  11. UCERIS TAB 9MG [Concomitant]
     Indication: Product used for unknown indication
  12. VANCOMYCIN CAP 125MG [Concomitant]
     Indication: Product used for unknown indication
  13. GABAPENTIN [Concomitant]
     Active Substance: GABAPENTIN
     Indication: Product used for unknown indication
  14. Bupropn hcl tab 300mg xl / BUPROPION SR 200MG TABLETS [Concomitant]
     Indication: Product used for unknown indication
  15. Calcium for chw women [Concomitant]
     Indication: Product used for unknown indication
  16. Desvenlafax tab 100mg er; [Concomitant]
     Indication: Product used for unknown indication
  17. Levothyroxin tab 150mcg [Concomitant]
     Indication: Product used for unknown indication
  18. Ondansetron tab 4 mg [Concomitant]
     Indication: Product used for unknown indication
  19. Levothyroxin tablet 175mcg [Concomitant]
     Indication: Product used for unknown indication
  20. Zolpidem tablets 10mg [Concomitant]
     Indication: Product used for unknown indication
  21. RISPERIDONE [Concomitant]
     Active Substance: RISPERIDONE
     Indication: Product used for unknown indication
  22. Pristiq 50mg tablets [Concomitant]
     Indication: Product used for unknown indication

REACTIONS (5)
  - Depression [Not Recovered/Not Resolved]
  - Somnolence [Not Recovered/Not Resolved]
  - Diarrhoea [Recovered/Resolved]
  - Fatigue [Not Recovered/Not Resolved]
  - Inappropriate schedule of product administration [Unknown]

NARRATIVE: CASE EVENT DATE: 20201030
